FAERS Safety Report 6390872-6 (Version None)
Quarter: 2009Q4

REPORT INFORMATION
  Report Type: 
  Country: None (occurrence: None)
  Receive Date: 20091006
  Receipt Date: 20090929
  Transmission Date: 20100525
  Serious: Yes (Other)
  Sender: FDA-Public Use
  Company Number: BR-ABBOTT-09P-020-0600100-00

PATIENT
  Sex: Female
  Weight: 46 kg

DRUGS (4)
  1. HUMIRA [Suspect]
     Indication: DRUG USE FOR UNKNOWN INDICATION
  2. RIVOTRIL [Concomitant]
     Indication: NERVOUSNESS
     Route: 048
     Dates: start: 20010101
  3. NETROLIK [Concomitant]
     Indication: HYPERTENSION
     Route: 048
     Dates: start: 20010101
  4. SELO-ZOK [Concomitant]
     Indication: CARDIAC DISORDER
     Route: 048
     Dates: start: 20010101

REACTIONS (2)
  - HYPERSENSITIVITY [None]
  - NEOPLASM PROGRESSION [None]
